FAERS Safety Report 7575429-3 (Version None)
Quarter: 2011Q2

REPORT INFORMATION
  Report Type: 
  Country: None (occurrence: None)
  Receive Date: 20110627
  Receipt Date: 20110614
  Transmission Date: 20111010
  Serious: Yes (Hospitalization)
  Sender: FDA-Public Use
  Company Number: NL-GENENTECH-319573

PATIENT
  Sex: Male
  Weight: 121 kg

DRUGS (6)
  1. DEXAMETHASONE [Suspect]
     Indication: CHRONIC LYMPHOCYTIC LEUKAEMIA
     Dosage: 40 MG, UNK
     Route: 042
     Dates: start: 20110517
  2. RITUXIMAB [Suspect]
     Indication: CHRONIC LYMPHOCYTIC LEUKAEMIA
     Dosage: 1100 MG, UNK
     Route: 042
     Dates: start: 20110517
  3. OXAZEPAM [Concomitant]
     Indication: ANXIETY
     Dosage: 10 MG, X3
     Route: 048
     Dates: start: 20110411
  4. CISPLATIN [Suspect]
     Indication: CHRONIC LYMPHOCYTIC LEUKAEMIA
     Dosage: 220 MG, UNK
     Route: 042
     Dates: start: 20110518
  5. CYTARABINE [Suspect]
     Indication: CHRONIC LYMPHOCYTIC LEUKAEMIA
     Dosage: 8.8 G, UNK
     Route: 042
     Dates: start: 20110519
  6. VENLAFAXINE [Concomitant]
     Indication: ANTIDEPRESSANT THERAPY
     Dosage: 75 MG, UNK
     Route: 048
     Dates: start: 19910101

REACTIONS (1)
  - CONFUSIONAL STATE [None]
